FAERS Safety Report 9507229 (Version 1)
Quarter: 2013Q1

REPORT INFORMATION
  Report Type: Spontaneous
  Country: US (occurrence: None)
  Receive Date: 20130305
  Receipt Date: 20130305
  Transmission Date: 20140127
  Serious: Yes (Hospitalization, Other)
  Sender: FDA-Public Use
  Company Number: 163-21880-12051003

PATIENT
  Age: 87 Year
  Sex: Female
  Weight: 44.45 kg

DRUGS (8)
  1. REVLIMID [Suspect]
     Indication: MYELODYSPLASTIC SYNDROME
     Dosage: 5 MG, 1 IN 1 D, PO
     Route: 048
     Dates: start: 20110409
  2. ARIMIDEX (ANASTROZOLE) (UNKNOWN) [Concomitant]
  3. CARDURA (DOXAZOSIN MESILATE) (UNKNOWN) [Concomitant]
  4. DIOVAN (VALSARTAN) (UNKNOWN) [Concomitant]
  5. FUROSEMIDE (FUROSEMIDE) (UNKNOWN) [Concomitant]
  6. METOPROLOL (METOPROLOL) (UNKNOWN) [Concomitant]
  7. TYLENOL (PARACETAMOL) (UNKNOWN) [Concomitant]
  8. VITAMIN D (ERGOCALCIFEROL) (UNKNOWN) [Concomitant]

REACTIONS (3)
  - Hip fracture [None]
  - Fall [None]
  - Balance disorder [None]
